FAERS Safety Report 8133099-X (Version None)
Quarter: 2012Q1

REPORT INFORMATION
  Report Type: 
  Country: None (occurrence: None)
  Receive Date: 20120213
  Receipt Date: 20120203
  Transmission Date: 20120608
  Serious: Yes (Other)
  Sender: FDA-Public Use
  Company Number: US-ABBOTT-12P-163-0903189-00

PATIENT
  Age: 27 Year
  Sex: Female

DRUGS (2)
  1. ADALIMUMAB [Suspect]
     Indication: CROHN'S DISEASE
  2. INFLIXIMAB [Suspect]
     Indication: CROHN'S DISEASE

REACTIONS (3)
  - ENCEPHALITIS BRAIN STEM [None]
  - OPTIC NEURITIS [None]
  - NEURITIS CRANIAL [None]
